FAERS Safety Report 25062531 (Version 4)
Quarter: 2025Q2

REPORT INFORMATION
  Report Type: Report from Study
  Country: US (occurrence: US)
  Receive Date: 20250311
  Receipt Date: 20250404
  Transmission Date: 20250717
  Serious: Yes (Hospitalization, Other)
  Sender: GILEAD
  Company Number: US-GILEAD-2025-0700419

PATIENT
  Age: 62 Year
  Sex: Female

DRUGS (7)
  1. AMBRISENTAN [Suspect]
     Active Substance: AMBRISENTAN
     Indication: Pulmonary arterial hypertension
     Dosage: 10 MG, QD
     Route: 048
     Dates: start: 202108
  2. AMBRISENTAN [Suspect]
     Active Substance: AMBRISENTAN
     Dosage: 10 MG, QD
     Route: 065
     Dates: start: 202405
  3. AMBRISENTAN [Suspect]
     Active Substance: AMBRISENTAN
     Dosage: 10 MG, QD
     Route: 048
     Dates: start: 202408
  4. REMODULIN [Suspect]
     Active Substance: TREPROSTINIL
     Indication: Pulmonary arterial hypertension
     Dosage: 60NG/KG/MIN CONTINUOUSLY VIA IV
     Route: 042
     Dates: start: 202503
  5. WINREVAIR [Suspect]
     Active Substance: SOTATERCEPT-CSRK
     Indication: Pulmonary arterial hypertension
     Route: 058
     Dates: start: 202503
  6. TYVASO [Concomitant]
     Active Substance: TREPROSTINIL
     Indication: Pulmonary arterial hypertension
     Dosage: 54 UG, QID
     Route: 065
     Dates: start: 202411
  7. TYVASO [Concomitant]
     Active Substance: TREPROSTINIL
     Dosage: 48 UG, QID
     Route: 065
     Dates: start: 202411

REACTIONS (5)
  - Ascites [Unknown]
  - Pain in jaw [Recovering/Resolving]
  - Dyspnoea exertional [Not Recovered/Not Resolved]
  - Oxygen therapy [Unknown]
  - Arthralgia [Not Recovered/Not Resolved]
